FAERS Safety Report 12257394 (Version 1)
Quarter: 2016Q2

REPORT INFORMATION
  Report Type: Spontaneous
  Country: TR (occurrence: TR)
  Receive Date: 20160412
  Receipt Date: 20160412
  Transmission Date: 20160815
  Serious: Yes (Other)
  Sender: FDA-Public Use
  Company Number: TR-SUPERNUS PHARMACEUTICALS, INC.-2016SUP00076

PATIENT
  Age: 37 Year
  Sex: Female

DRUGS (1)
  1. TOPIRAMATE. [Suspect]
     Active Substance: TOPIRAMATE
     Indication: MIGRAINE
     Dosage: 150 MG, 1X/DAY
     Route: 065

REACTIONS (1)
  - Psychotic disorder [Recovered/Resolved]
